FAERS Safety Report 5028841-0 (Version None)
Quarter: 2006Q2

REPORT INFORMATION
  Report Type: 
  Country: None (occurrence: None)
  Receive Date: 20060619
  Receipt Date: 20051123
  Transmission Date: 20061013
  Serious: Yes (Hospitalization, Other)
  Sender: FDA-Public Use
  Company Number: FR-AVENTIS-200513851FR

PATIENT
  Age: 60 Year
  Sex: Male
  Weight: 65 kg

DRUGS (5)
  1. ARAVA [Suspect]
     Indication: RHEUMATOID ARTHRITIS
     Route: 048
     Dates: start: 20050515, end: 20050722
  2. SOLUPRED [Concomitant]
     Indication: RHEUMATOID ARTHRITIS
     Route: 048
     Dates: start: 19990101
  3. MOPRAL [Concomitant]
     Indication: PROPHYLAXIS
     Route: 048
     Dates: start: 19990101
  4. DAFALGAN [Concomitant]
     Indication: ARTHRALGIA
     Route: 048
     Dates: start: 19990101
  5. OROCAL VITAMINE D3 [Concomitant]
     Indication: BLOOD CALCIUM DECREASED
     Route: 048
     Dates: start: 19990101

REACTIONS (3)
  - NON-HODGKIN'S LYMPHOMA [None]
  - POLYMYOSITIS [None]
  - RASH [None]
